FAERS Safety Report 5390505-1 (Version None)
Quarter: 2007Q3

REPORT INFORMATION
  Report Type: 
  Country: None (occurrence: None)
  Receive Date: 20070718
  Receipt Date: 20070228
  Transmission Date: 20080115
  Serious: No
  Sender: FDA-Public Use
  Company Number: US-KINGPHARMUSA00001-K200700233

PATIENT
  Sex: Female

DRUGS (3)
  1. LEVOXYL [Suspect]
     Indication: HYPOTHYROIDISM
     Dosage: 25 MCG, QD
     Route: 048
     Dates: start: 20061101, end: 20070101
  2. LEVOXYL [Suspect]
     Dosage: 37.5 MCG, QD
     Dates: start: 20070101
  3. HYDROCHLOROTHIAZIDE [Concomitant]
     Indication: FLUID RETENTION
     Dosage: UNK, PRN

REACTIONS (7)
  - BLOOD THYROID STIMULATING HORMONE DECREASED [None]
  - HYPERSENSITIVITY [None]
  - INCREASED APPETITE [None]
  - IRRITABILITY [None]
  - MALAISE [None]
  - OEDEMA PERIPHERAL [None]
  - WEIGHT INCREASED [None]
